FAERS Safety Report 7783915-6 (Version None)
Quarter: 2011Q3

REPORT INFORMATION
  Report Type: 
  Country: None (occurrence: None)
  Receive Date: 20110928
  Receipt Date: 20110922
  Transmission Date: 20111222
  Serious: Yes (Hospitalization)
  Sender: FDA-Public Use
  Company Number: JP-GLAXOSMITHKLINE-B0750400A

PATIENT
  Age: 24 Year
  Sex: Male

DRUGS (2)
  1. LAMICTAL [Suspect]
     Indication: BIPOLAR DISORDER
     Route: 048
  2. LITHIUM CARBONATE [Concomitant]
     Route: 048

REACTIONS (3)
  - MALAISE [None]
  - ECZEMA [None]
  - PYREXIA [None]
